FAERS Safety Report 10236568 (Version 1)
Quarter: 2014Q2

REPORT INFORMATION
  Report Type: Spontaneous
  Country: DE (occurrence: DE)
  Receive Date: 20140613
  Receipt Date: 20140613
  Transmission Date: 20141212
  Serious: Yes (Death)
  Sender: FDA-Public Use
  Company Number: PHHY2014DE070257

PATIENT
  Age: 86 Year
  Sex: Male

DRUGS (9)
  1. VALPROIC ACID [Suspect]
     Indication: PARTIAL SEIZURES
  2. CLONAZEPAM [Suspect]
  3. OMEPRAZOLE [Suspect]
  4. CLOPIDOGREL [Suspect]
  5. FUROSEMIDE [Suspect]
  6. CIPROFLOXACIN [Suspect]
  7. HEPARIN [Suspect]
  8. DICLOFENAC [Suspect]
  9. L-DOPA [Suspect]

REACTIONS (1)
  - Hepatic failure [Fatal]
